FAERS Safety Report 17534811 (Version 1)
Quarter: 2020Q1

REPORT INFORMATION
  Report Type: Spontaneous
  Country: US (occurrence: US)
  Receive Date: 20200312
  Receipt Date: 20200312
  Transmission Date: 20200409
  Serious: No
  Sender: FDA-Public Use
  Company Number: US-SA-2020SA060735

PATIENT
  Age: 55 Year
  Sex: Male
  Weight: 97.51 kg

DRUGS (1)
  1. DUPIXENT [Suspect]
     Active Substance: DUPILUMAB
     Indication: ASTHMA
     Dosage: 300 MG, QOW
     Route: 058
     Dates: start: 20200101

REACTIONS (3)
  - Injection site pain [Unknown]
  - Condition aggravated [Unknown]
  - Injection site erythema [Unknown]
